FAERS Safety Report 9228954 (Version 3)
Quarter: 2013Q2

REPORT INFORMATION
  Report Type: Spontaneous
  Country: BG (occurrence: BG)
  Receive Date: 20130412
  Receipt Date: 20130502
  Transmission Date: 20140414
  Serious: Yes (Hospitalization)
  Sender: FDA-Public Use
  Company Number: BG-ASTRAZENECA-2013SE21991

PATIENT
  Age: 53 Year
  Sex: Male
  Weight: 100 kg

DRUGS (9)
  1. BRILIQUE [Suspect]
     Indication: STENT PLACEMENT
     Route: 048
  2. ASPIRIN [Concomitant]
     Indication: STENT PLACEMENT
     Dosage: 100 MG AFTER DINNER
     Route: 048
  3. BETALOC ZOK [Concomitant]
     Dosage: 50 MG, 1+0+1/2
  4. EXFORGE [Concomitant]
     Dosage: 160/5 MG, 1/2 TABLET AFTER DINNER
     Route: 048
  5. SORTIS [Concomitant]
     Dosage: 20 MG, 1 TABLET AFTER DINNER
     Route: 048
  6. LIPANTHYL SUPRA [Concomitant]
     Dosage: 160 MG, 1 CAPSULE AFTER DINNER
     Route: 048
  7. SIOFOR [Concomitant]
  8. AMARYL [Concomitant]
  9. PLAVIX [Concomitant]

REACTIONS (2)
  - Haemorrhagic anaemia [Recovered/Resolved]
  - Duodenal ulcer haemorrhage [Recovered/Resolved]
